FAERS Safety Report 7557265-7 (Version None)
Quarter: 2011Q2

REPORT INFORMATION
  Report Type: 
  Country: None (occurrence: None)
  Receive Date: 20110620
  Receipt Date: 20060629
  Transmission Date: 20111010
  Serious: Yes (Hospitalization)
  Sender: FDA-Public Use
  Company Number: PHFR2006GB00703

PATIENT
  Sex: Male

DRUGS (7)
  1. LANSOPRAZOLE [Suspect]
     Dates: start: 20060127
  2. OMEPRAZOLE [Concomitant]
     Indication: GASTROOESOPHAGEAL REFLUX DISEASE
     Dosage: 20 MG BID
     Route: 048
  3. CLOZAPINE [Suspect]
     Indication: SCHIZOPHRENIA
     Dosage: 100MG/DAY
     Route: 048
     Dates: start: 20051110
  4. DICLOFENAC SODIUM [Suspect]
     Dates: start: 20060127
  5. SENNA GLYCOSIDES (CA SALTS OF PURIFIED S [Suspect]
     Indication: CONSTIPATION
     Route: 048
  6. TEMAZEPAM [Suspect]
     Indication: INSOMNIA
     Dosage: 10-20 G, PRN
     Route: 048
  7. CLOZAPINE [Suspect]
     Dosage: 4 X 100MG TABLETS
     Route: 048
     Dates: start: 20060127

REACTIONS (3)
  - MEDICATION ERROR [None]
  - CONFUSIONAL STATE [None]
  - ACCIDENTAL OVERDOSE [None]
